FAERS Safety Report 9551649 (Version 1)
Quarter: 2013Q3

REPORT INFORMATION
  Report Type: Spontaneous
  Country: US (occurrence: US)
  Receive Date: 20130925
  Receipt Date: 20130925
  Transmission Date: 20140515
  Serious: Yes (Other)
  Sender: FDA-Public Use
  Company Number: US-RANBAXY-2013US-73452

PATIENT
  Age: 26 Year
  Sex: Male

DRUGS (3)
  1. TOPIRAMATE [Suspect]
     Indication: COMPULSIVE SEXUAL BEHAVIOUR
     Dosage: 50 MG/DAY
     Route: 065
  2. LEVETIRACETAM [Suspect]
     Indication: COMPULSIVE SEXUAL BEHAVIOUR
     Dosage: 250 MG, BID
     Route: 065
  3. AMFETAMINE [Suspect]
     Indication: COGNITIVE DISORDER
     Dosage: 10 MG, BID
     Route: 065

REACTIONS (4)
  - Cognitive disorder [Recovered/Resolved]
  - Sedation [Unknown]
  - Sexual dysfunction [Unknown]
  - Off label use [Unknown]
